FAERS Safety Report 22603976 (Version 1)
Quarter: 2023Q2

REPORT INFORMATION
  Report Type: Spontaneous
  Country: ES (occurrence: ES)
  Receive Date: 20230615
  Receipt Date: 20230615
  Transmission Date: 20230722
  Serious: Yes (Other)
  Sender: FDA-Public Use
  Company Number: ES-STRIDES ARCOLAB LIMITED-2023SP009475

PATIENT
  Age: 71 Year
  Sex: Male

DRUGS (20)
  1. LORAZEPAM [Interacting]
     Active Substance: LORAZEPAM
     Indication: Insomnia
     Dosage: 1 MILLIGRAM PER 8 HOURS
     Route: 065
  2. LORAZEPAM [Interacting]
     Active Substance: LORAZEPAM
     Dosage: 5 MILLIGRAM PER 24 HOURS
     Route: 065
     Dates: start: 2022
  3. LORAZEPAM [Interacting]
     Active Substance: LORAZEPAM
     Dosage: UNK, DOSE WAS REDUCED
     Route: 065
     Dates: start: 2022
  4. RIFAMPIN [Interacting]
     Active Substance: RIFAMPIN
     Indication: Enterococcal infection
     Dosage: 600 MILLIGRAM PER 24 HOURS
     Route: 048
     Dates: start: 2022
  5. RIFAMPIN [Interacting]
     Active Substance: RIFAMPIN
     Indication: Staphylococcal infection
  6. OSIMERTINIB [Concomitant]
     Active Substance: OSIMERTINIB
     Indication: Lung neoplasm
     Dosage: 80 MILLIGRAM PER 24 HOURS
     Route: 065
     Dates: start: 202201
  7. AMPICILLIN [Concomitant]
     Active Substance: AMPICILLIN
     Indication: Enterococcal infection
     Dosage: UNK
     Route: 042
     Dates: start: 2022
  8. AMPICILLIN [Concomitant]
     Active Substance: AMPICILLIN
     Indication: Staphylococcal infection
  9. CEFTRIAXONE [Concomitant]
     Active Substance: CEFTRIAXONE
     Indication: Enterococcal infection
     Dosage: UNK
     Route: 042
     Dates: start: 2022
  10. CEFTRIAXONE [Concomitant]
     Active Substance: CEFTRIAXONE
     Indication: Staphylococcal infection
  11. VANCOMYCIN [Concomitant]
     Active Substance: VANCOMYCIN
     Indication: Enterococcal infection
     Dosage: UNK
     Route: 042
     Dates: start: 2022
  12. VANCOMYCIN [Concomitant]
     Active Substance: VANCOMYCIN
     Indication: Staphylococcal infection
  13. TEDIZOLID [Concomitant]
     Active Substance: TEDIZOLID
     Indication: Enterococcal infection
     Dosage: 200 MILLIGRAM PER 24 HOURS
     Route: 048
     Dates: start: 2022
  14. TEDIZOLID [Concomitant]
     Active Substance: TEDIZOLID
     Indication: Staphylococcal infection
  15. ACETAMINOPHEN\TRAMADOL [Concomitant]
     Active Substance: ACETAMINOPHEN\TRAMADOL
     Indication: Pain
     Dosage: UNK, EVERY 8 HOURS, 37.5/325MG
     Route: 065
  16. DIPYRONE [Concomitant]
     Active Substance: DIPYRONE
     Indication: Pain
     Dosage: 575 MILLIGRAM, EVERY 8 HOURS
     Route: 065
  17. DIAZEPAM [Concomitant]
     Active Substance: DIAZEPAM
     Indication: Product used for unknown indication
     Dosage: 5 MILLIGRAM EVERY 24 HOURS
     Route: 065
  18. PREGABALIN [Concomitant]
     Active Substance: PREGABALIN
     Indication: Pain
     Dosage: 75 MILLIGRAM EVERY 24 HOURS
     Route: 065
  19. SIMVASTATIN [Concomitant]
     Active Substance: SIMVASTATIN
     Indication: Dyslipidaemia
     Dosage: 10 MILLIGRAM EVERY 24 HOURS
     Route: 065
  20. DULOXETINE [Concomitant]
     Active Substance: DULOXETINE
     Indication: Product used for unknown indication
     Dosage: 60 MILLIGRAM EVERY 24 HOURS
     Route: 065

REACTIONS (3)
  - Drug level decreased [Unknown]
  - Drug interaction [Unknown]
  - Drug ineffective for unapproved indication [Unknown]

NARRATIVE: CASE EVENT DATE: 20220101
